FAERS Safety Report 5028543-0 (Version None)
Quarter: 2006Q2

REPORT INFORMATION
  Report Type: 
  Country: None (occurrence: None)
  Receive Date: 20060617
  Receipt Date: 20060602
  Transmission Date: 20061013
  Serious: Yes (Disabling)
  Sender: FDA-Public Use
  Company Number: AU-BOEHRINGER INGELHEIM PHARMACEUTICALS, INC.-2006-BP-06767AU

PATIENT
  Sex: Female
  Weight: 65 kg

DRUGS (1)
  1. SPIRIVA [Suspect]
     Indication: EMPHYSEMA
     Route: 055

REACTIONS (6)
  - COUGH [None]
  - EYE PAIN [None]
  - HYPERSENSITIVITY [None]
  - PHARYNGEAL OEDEMA [None]
  - RASH [None]
  - STOMATITIS [None]
